FAERS Safety Report 5468779-8 (Version None)
Quarter: 2007Q3

REPORT INFORMATION
  Report Type: 
  Country: None (occurrence: None)
  Receive Date: 20070926
  Receipt Date: 20070919
  Transmission Date: 20080115
  Serious: Yes (Other)
  Sender: FDA-Public Use
  Company Number: US-PFIZER INC-2007047130

PATIENT
  Sex: Male

DRUGS (1)
  1. XALATAN [Suspect]

REACTIONS (14)
  - ABNORMAL SENSATION IN EYE [None]
  - CATARACT OPERATION [None]
  - EYE IRRITATION [None]
  - EYE LASER SURGERY [None]
  - IMPAIRED HEALING [None]
  - INTRAOCULAR PRESSURE INCREASED [None]
  - MUSCLE TWITCHING [None]
  - OCULAR HYPERAEMIA [None]
  - PAIN [None]
  - PHOTOSENSITIVITY REACTION [None]
  - PRURITUS [None]
  - SENSATION OF FOREIGN BODY [None]
  - VISION BLURRED [None]
  - VITREOUS DISORDER [None]
